FAERS Safety Report 9614181 (Version 3)
Quarter: 2014Q4

REPORT INFORMATION
  Report Type: Spontaneous
  Country: US (occurrence: US)
  Receive Date: 20131011
  Receipt Date: 20141203
  Transmission Date: 20150529
  Serious: Yes (Hospitalization, Other)
  Sender: FDA-Public Use
  Company Number: US-BIOGENIDEC-2013BI095811

PATIENT
  Age: 36 Year
  Sex: Male

DRUGS (1)
  1. TECFIDERA [Suspect]
     Active Substance: DIMETHYL FUMARATE
     Indication: MULTIPLE SCLEROSIS
     Dates: start: 201304

REACTIONS (3)
  - Abdominal pain upper [Unknown]
  - Flushing [Unknown]
  - Eosinophilic fasciitis [Not Recovered/Not Resolved]

NARRATIVE: CASE EVENT DATE: 201308
